FAERS Safety Report 8880982 (Version 3)
Quarter: 2013Q2

REPORT INFORMATION
  Report Type: Spontaneous
  Country: US (occurrence: US)
  Receive Date: 20121101
  Receipt Date: 20130612
  Transmission Date: 20140414
  Serious: Yes (Other)
  Sender: FDA-Public Use
  Company Number: US-PFIZER INC-2012267986

PATIENT
  Age: 6 Decade
  Sex: Female

DRUGS (4)
  1. LYRICA [Suspect]
     Indication: FIBROMYALGIA
     Dosage: 50 MG MORNING, 75 MG AFTERNOON AND 75 MG EVENING
  2. LYRICA [Suspect]
     Indication: FATIGUE
     Dosage: 2 - 75 MG MORNING AND 2 - 75 MG EVENING
  3. LYRICA [Suspect]
     Dosage: 50 MG, 2X/DAY
     Route: 048
  4. PRILOSEC [Concomitant]
     Indication: DYSPEPSIA

REACTIONS (12)
  - Off label use [Unknown]
  - Systemic lupus erythematosus [Unknown]
  - Swollen tongue [Unknown]
  - Dysphagia [Unknown]
  - Drug hypersensitivity [Unknown]
  - Migraine [Unknown]
  - Chills [Unknown]
  - Fatigue [Unknown]
  - Palpitations [Unknown]
  - Feeling abnormal [Unknown]
  - Psychomotor hyperactivity [Unknown]
  - Mood altered [Unknown]
